FAERS Safety Report 5401665-8 (Version None)
Quarter: 2007Q3

REPORT INFORMATION
  Report Type: 
  Country: None (occurrence: None)
  Receive Date: 20070731
  Receipt Date: 20070606
  Transmission Date: 20080115
  Serious: Yes (Other)
  Sender: FDA-Public Use
  Company Number: US-PURDUE-USA_2007_0028436

PATIENT
  Sex: Male

DRUGS (1)
  1. OXYCONTIN [Suspect]
     Indication: BACK PAIN
     Dates: start: 20001127, end: 20011022

REACTIONS (4)
  - CARDIAC DISORDER [None]
  - RASH [None]
  - RESPIRATORY DISORDER [None]
  - VISUAL DISTURBANCE [None]
